FAERS Safety Report 7767164-3 (Version None)
Quarter: 2011Q3

REPORT INFORMATION
  Report Type: 
  Country: None (occurrence: None)
  Receive Date: 20110922
  Receipt Date: 20110203
  Transmission Date: 20111222
  Serious: No
  Sender: FDA-Public Use
  Company Number: US-ASTRAZENECA-2011SE06133

PATIENT
  Sex: Female

DRUGS (8)
  1. SEROQUEL [Suspect]
     Indication: BIPOLAR DISORDER
     Route: 048
     Dates: start: 20080101
  2. DEPAKOTE [Concomitant]
     Dosage: ONE TABLET
     Route: 048
  3. DEPAKOTE [Concomitant]
     Indication: BIPOLAR DISORDER
     Dosage: TWO TABLET DAILY
     Route: 048
     Dates: start: 20080101
  4. VITAMIN D [Concomitant]
     Route: 048
  5. SEROQUEL [Suspect]
     Dosage: TWO TABLET AT NIGHT
     Route: 048
  6. SEROQUEL [Suspect]
     Dosage: ONE TABLET
     Route: 048
  7. SYNTHROID [Concomitant]
     Indication: HYPOTHYROIDISM
  8. BONIVA [Concomitant]
     Indication: OSTEOPOROSIS
     Route: 048

REACTIONS (5)
  - INCORRECT DOSE ADMINISTERED [None]
  - HYPERSOMNIA [None]
  - SEDATION [None]
  - SOMNOLENCE [None]
  - STRESS [None]
